FAERS Safety Report 7154392-3 (Version None)
Quarter: 2010Q4

REPORT INFORMATION
  Report Type: 
  Country: None (occurrence: None)
  Receive Date: 20101213
  Receipt Date: 20101130
  Transmission Date: 20110411
  Serious: Yes (Other)
  Sender: FDA-Public Use
  Company Number: IT-ELI_LILLY_AND_COMPANY-IT201011004857

PATIENT
  Sex: Female

DRUGS (3)
  1. CYMBALTA [Suspect]
     Indication: DEPRESSION
     Dosage: 60 MG, DAILY (1/D)
     Route: 048
     Dates: start: 20090901, end: 20100901
  2. GLIMEPIRIDE [Concomitant]
     Indication: DIABETES MELLITUS
     Dosage: 2 MG, DAILY (1/D)
  3. SARTAN [Concomitant]
     Indication: BLOOD PRESSURE INCREASED

REACTIONS (4)
  - HEADACHE [None]
  - HEPATOTOXICITY [None]
  - NAUSEA [None]
  - TRANSAMINASES INCREASED [None]
